FAERS Safety Report 8236064-7 (Version None)
Quarter: 2012Q1

REPORT INFORMATION
  Report Type: 
  Country: None (occurrence: None)
  Receive Date: 20120327
  Receipt Date: 20120313
  Transmission Date: 20120608
  Serious: Yes (Life-Threatening, Hospitalization)
  Sender: FDA-Public Use
  Company Number: FR-AMGEN-FRASP2012016139

PATIENT
  Age: 81 Year
  Sex: Female

DRUGS (9)
  1. ENBREL [Suspect]
     Indication: RHEUMATOID ARTHRITIS
     Dosage: 50 MG, WEEKLY
     Dates: start: 20050601, end: 20111030
  2. MEDROL [Concomitant]
     Dosage: 4 MG, 1X/DAY
  3. ACETAMINOPHEN [Concomitant]
     Dosage: 3 G, 1X/DAY
  4. NEXIUM [Concomitant]
     Dosage: 40 MG, 1X/DAY
  5. OSTRAM-VIT.D3 [Concomitant]
     Dosage: 1 DF, 1X/DAY
  6. CELIPROLOL [Concomitant]
     Dosage: 200 MG, 1X/DAY
  7. REMICADE [Suspect]
     Dosage: 200 MG, EVERY 2 MONTHS
     Route: 042
     Dates: start: 20010928, end: 20050201
  8. METHOTREXATE [Suspect]
     Indication: RHEUMATOID ARTHRITIS
     Dosage: 7.5 MG, WEEKLY
     Route: 048
     Dates: start: 20011016, end: 20111030
  9. TANGANIL                           /00129601/ [Concomitant]
     Dosage: 4 DF, 1X/DAY

REACTIONS (1)
  - GALLBLADDER CANCER [None]
